FAERS Safety Report 7345559-X (Version None)
Quarter: 2011Q1

REPORT INFORMATION
  Report Type: 
  Country: None (occurrence: None)
  Receive Date: 20110310
  Receipt Date: 20110225
  Transmission Date: 20110831
  Serious: Yes (Other)
  Sender: FDA-Public Use
  Company Number: GB-GENENTECH-314590

PATIENT
  Age: 2 Year
  Sex: Male

DRUGS (4)
  1. RITUXIMAB [Suspect]
     Indication: FACTOR VIII INHIBITION
     Dosage: 375 MG/M2, UNK
     Route: 065
  2. ANTIHEMOPHILIC FACTOR (HUMAN) [Suspect]
     Indication: FACTOR VIII DEFICIENCY
     Dosage: UNK
     Route: 065
  3. FEIBA [Suspect]
     Indication: FACTOR VIII DEFICIENCY
     Dosage: UNK
     Route: 065
  4. NOVOSEVEN [Suspect]
     Indication: FACTOR VIII DEFICIENCY
     Dosage: UNK
     Route: 065

REACTIONS (1)
  - DRUG INEFFECTIVE [None]
